FAERS Safety Report 25150663 (Version 1)
Quarter: 2025Q2

REPORT INFORMATION
  Report Type: Spontaneous
  Country: IT (occurrence: IT)
  Receive Date: 20250402
  Receipt Date: 20250402
  Transmission Date: 20250716
  Serious: Yes (Other)
  Sender: MYLAN
  Company Number: IT-SUN PHARMACEUTICAL INDUSTRIES LTD-2025RR-500086

PATIENT
  Age: 57 Year
  Sex: Female

DRUGS (20)
  1. IMATINIB [Suspect]
     Active Substance: IMATINIB
     Indication: Philadelphia positive acute lymphocytic leukaemia
  2. IMATINIB [Suspect]
     Active Substance: IMATINIB
     Route: 065
  3. IMATINIB [Suspect]
     Active Substance: IMATINIB
     Route: 065
  4. IMATINIB [Suspect]
     Active Substance: IMATINIB
  5. DASATINIB [Suspect]
     Active Substance: DASATINIB
     Indication: Philadelphia positive acute lymphocytic leukaemia
  6. DASATINIB [Suspect]
     Active Substance: DASATINIB
     Route: 065
  7. DASATINIB [Suspect]
     Active Substance: DASATINIB
     Route: 065
  8. DASATINIB [Suspect]
     Active Substance: DASATINIB
  9. MITOXANTRONE [Suspect]
     Active Substance: MITOXANTRONE HYDROCHLORIDE
     Indication: Philadelphia positive acute lymphocytic leukaemia
  10. MITOXANTRONE [Suspect]
     Active Substance: MITOXANTRONE HYDROCHLORIDE
     Route: 065
  11. MITOXANTRONE [Suspect]
     Active Substance: MITOXANTRONE HYDROCHLORIDE
     Route: 065
  12. MITOXANTRONE [Suspect]
     Active Substance: MITOXANTRONE HYDROCHLORIDE
  13. VINCRISTINE [Suspect]
     Active Substance: VINCRISTINE
     Indication: Philadelphia positive acute lymphocytic leukaemia
  14. VINCRISTINE [Suspect]
     Active Substance: VINCRISTINE
     Route: 065
  15. VINCRISTINE [Suspect]
     Active Substance: VINCRISTINE
     Route: 065
  16. VINCRISTINE [Suspect]
     Active Substance: VINCRISTINE
  17. CYTARABINE [Suspect]
     Active Substance: CYTARABINE
     Indication: Philadelphia positive acute lymphocytic leukaemia
  18. CYTARABINE [Suspect]
     Active Substance: CYTARABINE
     Route: 065
  19. CYTARABINE [Suspect]
     Active Substance: CYTARABINE
     Route: 065
  20. CYTARABINE [Suspect]
     Active Substance: CYTARABINE

REACTIONS (1)
  - Drug resistance [Unknown]
